FAERS Safety Report 9772737 (Version 1)
Quarter: 2013Q4

REPORT INFORMATION
  Report Type: Spontaneous
  Country: IT (occurrence: IT)
  Receive Date: 20131219
  Receipt Date: 20131219
  Transmission Date: 20140711
  Serious: Yes (Other)
  Sender: FDA-Public Use
  Company Number: IT-ACTAVIS-2013-22837

PATIENT
  Age: 41 Year
  Sex: Female

DRUGS (2)
  1. PACLITAXEL (UNKNOWN) [Suspect]
     Indication: ADENOCARCINOMA OF THE CERVIX
     Dosage: 300 MG, CYCLICAL
     Route: 042
     Dates: start: 20130724, end: 20131107
  2. CARBOPLATIN TEVA [Suspect]
     Indication: ADENOCARCINOMA OF THE CERVIX
     Dosage: 460 MG, CYCLICAL
     Route: 042
     Dates: start: 20130724, end: 20131107

REACTIONS (3)
  - Anaemia [Unknown]
  - Neutropenia [Unknown]
  - Thrombocytopenia [Unknown]
